FAERS Safety Report 8101079-6 (Version None)
Quarter: 2012Q1

REPORT INFORMATION
  Report Type: 
  Country: None (occurrence: None)
  Receive Date: 20120129
  Receipt Date: 20110907
  Transmission Date: 20120608
  Serious: No
  Sender: FDA-Public Use
  Company Number: US-ABBOTT-11P-163-0852667-00

PATIENT
  Sex: Female
  Weight: 51.302 kg

DRUGS (8)
  1. HUMIRA [Suspect]
     Indication: CROHN'S DISEASE
     Dosage: FOUR INJECTIONS ON THE FIRST DAY
     Route: 050
     Dates: start: 20110720, end: 20110720
  2. COUMADIN [Concomitant]
     Indication: HEART RATE IRREGULAR
  3. UNKNOWN MEDICATION [Concomitant]
     Indication: CROHN'S DISEASE
  4. OMEPRAZOLE [Concomitant]
     Indication: GASTRIC DISORDER
  5. PENTASA [Concomitant]
     Indication: CROHN'S DISEASE
  6. HUMIRA [Suspect]
     Dosage: TWO INJECTIONS ON DAY 15
     Route: 050
     Dates: start: 20110804, end: 20110804
  7. LASIX [Concomitant]
     Indication: PRODUCT USED FOR UNKNOWN INDICATION
  8. LISINOPRIL [Concomitant]
     Indication: BLOOD PRESSURE

REACTIONS (4)
  - PAIN IN EXTREMITY [None]
  - FALL [None]
  - NASOPHARYNGITIS [None]
  - ARTHRALGIA [None]
